FAERS Safety Report 6686232-0 (Version None)
Quarter: 2010Q2

REPORT INFORMATION
  Report Type: 
  Country: None (occurrence: None)
  Receive Date: 20100414
  Receipt Date: 20100331
  Transmission Date: 20101027
  Serious: Yes (Disabling)
  Sender: FDA-Public Use
  Company Number: 004328

PATIENT
  Sex: Male
  Weight: 79 kg

DRUGS (6)
  1. NEUPRO [Suspect]
     Indication: RESTLESS LEGS SYNDROME
     Dosage: SEE IMAGE
     Route: 062
     Dates: start: 20100110
  2. DILTIAZEM HCL [Concomitant]
  3. TEBONIN /01003104/ [Concomitant]
  4. MAGNESIUM DIASPORAL [Concomitant]
  5. SORTIS /01326101/ [Concomitant]
  6. EZETROL [Concomitant]

REACTIONS (6)
  - DEPRESSION [None]
  - FATIGUE [None]
  - HEADACHE [None]
  - INTENTIONAL DRUG MISUSE [None]
  - NAUSEA [None]
  - VOMITING [None]
